FAERS Safety Report 12651815 (Version 3)
Quarter: 2016Q3

REPORT INFORMATION
  Report Type: Report from Study
  Country: ES (occurrence: ES)
  Receive Date: 20160815
  Receipt Date: 20160926
  Transmission Date: 20161109
  Serious: Yes (Death)
  Sender: FDA-Public Use
  Company Number: ES-EISAI MEDICAL RESEARCH-EC-2016-019457

PATIENT
  Age: 79 Year
  Sex: Female

DRUGS (18)
  1. QUETIAPINE. [Concomitant]
     Active Substance: QUETIAPINE
  2. IRON [Concomitant]
     Active Substance: IRON
  3. METOCLOPRAMIDE. [Concomitant]
     Active Substance: METOCLOPRAMIDE
  4. LENVATINIB [Suspect]
     Active Substance: LENVATINIB
     Indication: THYROID CANCER
     Route: 048
     Dates: start: 20160620, end: 20160703
  5. METAMIZOLE [Concomitant]
     Active Substance: METAMIZOLE
  6. PARACETAMOL [Concomitant]
     Active Substance: ACETAMINOPHEN
  7. LENVATINIB [Suspect]
     Active Substance: LENVATINIB
     Dosage: DOSE REDUCED
     Route: 048
     Dates: start: 20160704, end: 20160729
  8. ESOMEPRAZOLE [Concomitant]
     Active Substance: ESOMEPRAZOLE
  9. TRAZODONE [Concomitant]
     Active Substance: TRAZODONE HYDROCHLORIDE
  10. PREGABALIN. [Concomitant]
     Active Substance: PREGABALIN
  11. CIPROFLOXACIN. [Concomitant]
     Active Substance: CIPROFLOXACIN
  12. CLOMIPRAMINE [Concomitant]
     Active Substance: CLOMIPRAMINE
  13. HUMALOG [Concomitant]
     Active Substance: INSULIN LISPRO
  14. HYDROCORTISONE. [Concomitant]
     Active Substance: HYDROCORTISONE
  15. LEVOTHYROXINE. [Concomitant]
     Active Substance: LEVOTHYROXINE
  16. VENLAFAXINE [Concomitant]
     Active Substance: VENLAFAXINE HYDROCHLORIDE
  17. ARIPIPRAZOLE. [Concomitant]
     Active Substance: ARIPIPRAZOLE
  18. FENTANIL [Concomitant]
     Active Substance: FENTANYL

REACTIONS (1)
  - Lethargy [Fatal]

NARRATIVE: CASE EVENT DATE: 20160801
